FAERS Safety Report 13051578 (Version 1)
Quarter: 2016Q4

REPORT INFORMATION
  Report Type: Spontaneous
  Country: US (occurrence: US)
  Receive Date: 20161221
  Receipt Date: 20161221
  Transmission Date: 20170207
  Serious: Yes (Hospitalization)
  Sender: FDA-Public Use
  Company Number: US-BAYER-2016-241794

PATIENT
  Age: 42 Year
  Sex: Female
  Weight: 52.15 kg

DRUGS (1)
  1. BAYER ASPIRIN [Suspect]
     Active Substance: ASPIRIN
     Indication: HEADACHE
     Dosage: 0.25 (1/4) DF, UNK
     Route: 048

REACTIONS (4)
  - Urticaria [Recovered/Resolved]
  - Anaphylactic shock [Recovered/Resolved]
  - Wheezing [Recovered/Resolved]
  - Skin discolouration [Recovered/Resolved]
